FAERS Safety Report 4665722-6 (Version None)
Quarter: 2005Q2

REPORT INFORMATION
  Report Type: 
  Country: None (occurrence: None)
  Receive Date: 20050519
  Receipt Date: 20050228
  Transmission Date: 20051028
  Serious: Yes (Death)
  Sender: FDA-Public Use
  Company Number: GB-BOEHRINGER INGELHEIM PHARMACEUTICALS, INC.-2005-UK-00348UK

PATIENT
  Sex: Male
  Weight: 64.4 kg

DRUGS (8)
  1. TIOTROPIUM (00015/0190/A) [Suspect]
     Route: 055
  2. CALCICHEW D3 FORTE [Suspect]
     Dosage: 2 TABLETS DAILY
  3. SERETIDE 250 ACCUHALER [Suspect]
     Dosage: 2 PUFFS MORNING + NIGHT
  4. SALBUTAMOL [Suspect]
     Dosage: 2.5 ML AS REQUIRED
  5. SALBUTAMOL 200 INHALER [Suspect]
     Dosage: 2 PUFFS 4 TIMES DAILY
  6. ASPIRIN [Suspect]
     Dosage: 75 MG DAILY
  7. OMEPRAZOLE [Suspect]
     Dosage: 20 MG DAILY
  8. FLOMAX [Suspect]
     Dosage: 1 CAPSULE DAILY

REACTIONS (2)
  - ASBESTOSIS [None]
  - CHRONIC OBSTRUCTIVE PULMONARY DISEASE [None]
